FAERS Safety Report 5293887-4 (Version None)
Quarter: 2007Q2

REPORT INFORMATION
  Report Type: 
  Country: None (occurrence: None)
  Receive Date: 20070411
  Receipt Date: 20070330
  Transmission Date: 20071010
  Serious: Yes (Death, Life-Threatening)
  Sender: FDA-Public Use
  Company Number: FR-PFIZER INC-2007025956

PATIENT
  Age: 54 Year
  Sex: Male

DRUGS (6)
  1. TRIFLUCAN [Suspect]
     Route: 048
     Dates: start: 20070205, end: 20070308
  2. SUTENT [Suspect]
     Dosage: DAILY DOSE:50MG
     Route: 048
     Dates: start: 20070213, end: 20070309
  3. EUPRESSYL [Suspect]
     Indication: HYPERTENSION
     Route: 048
     Dates: start: 20070227, end: 20070309
  4. AVLOCARDYL [Suspect]
     Route: 048
     Dates: start: 20070308, end: 20070308
  5. TRIATEC [Suspect]
     Indication: HYPERTENSION
     Route: 048
     Dates: start: 20070305, end: 20070308
  6. INDAPAMIDE [Suspect]
     Indication: HYPERTENSION
     Route: 048
     Dates: start: 20070305, end: 20070308

REACTIONS (6)
  - CARDIAC FAILURE [None]
  - DYSPNOEA [None]
  - ESSENTIAL HYPERTENSION [None]
  - HYPERCALCAEMIA [None]
  - HYPERTHYROIDISM [None]
  - PULMONARY OEDEMA [None]
